FAERS Safety Report 6140840-4 (Version None)
Quarter: 2009Q2

REPORT INFORMATION
  Report Type: 
  Country: None (occurrence: None)
  Receive Date: 20090402
  Receipt Date: 20090223
  Transmission Date: 20091009
  Serious: No
  Sender: FDA-Public Use
  Company Number: US-KINGPHARMUSA00001-K200900195

PATIENT
  Sex: Female
  Weight: 65.76 kg

DRUGS (4)
  1. SKELAXIN [Suspect]
     Indication: MUSCLE SPASMS
     Dosage: 400 MG, TID
     Dates: start: 20080801
  2. SKELAXIN [Suspect]
     Dosage: 800 MG, QHS
     Dates: start: 20080801
  3. DARVOCET                           /00220901/ [Concomitant]
     Indication: PAIN
     Dosage: UNK
  4. ACETAMINOPHEN [Concomitant]
     Indication: PAIN
     Dosage: UNK

REACTIONS (3)
  - DYSPHAGIA [None]
  - OESOPHAGEAL SPASM [None]
  - TREMOR [None]
